FAERS Safety Report 9353526 (Version 1)
Quarter: 2013Q2

REPORT INFORMATION
  Report Type: Spontaneous
  Country: DE (occurrence: DE)
  Receive Date: 20130618
  Receipt Date: 20130618
  Transmission Date: 20140414
  Serious: Yes (Other)
  Sender: FDA-Public Use
  Company Number: DE-JNJFOC-20130609229

PATIENT
  Age: 9 Decade
  Sex: Female

DRUGS (1)
  1. PALEXIA RETARD [Suspect]
     Indication: PRODUCT USED FOR UNKNOWN INDICATION
     Route: 065
     Dates: start: 2011, end: 201305

REACTIONS (3)
  - Delirium [Not Recovered/Not Resolved]
  - Nightmare [Not Recovered/Not Resolved]
  - Confusional state [Not Recovered/Not Resolved]
